FAERS Safety Report 9797655 (Version 1)
Quarter: 2014Q1

REPORT INFORMATION
  Report Type: Spontaneous
  Country: US (occurrence: US)
  Receive Date: 20140106
  Receipt Date: 20140106
  Transmission Date: 20141002
  Serious: No
  Sender: FDA-Public Use
  Company Number: US-PFIZER INC-2014002444

PATIENT
  Age: 56 Year
  Sex: Female
  Weight: 52.2 kg

DRUGS (3)
  1. LYRICA [Suspect]
     Indication: NEUROPATHY PERIPHERAL
     Dosage: 150 MG, 3X/DAY
     Route: 048
     Dates: end: 201312
  2. LYRICA [Suspect]
     Indication: THERMAL BURN
  3. PRISTIQ [Concomitant]
     Dosage: UNK

REACTIONS (1)
  - Pain [Unknown]
